FAERS Safety Report 4557741-5 (Version None)
Quarter: 2005Q1

REPORT INFORMATION
  Report Type: 
  Country: None (occurrence: None)
  Receive Date: 20050103
  Receipt Date: 20040803
  Transmission Date: 20050727
  Serious: Yes (Other)
  Sender: FDA-Public Use
  Company Number: 2004UW16456

PATIENT
  Age: 70 Year
  Sex: Female
  Weight: 102.5129 kg

DRUGS (3)
  1. CRESTOR [Suspect]
     Indication: HYPERCHOLESTEROLAEMIA
     Dosage: 10 MG PO
     Route: 048
     Dates: start: 20040714
  2. AVANDIA [Concomitant]
  3. GLIPIZIDE [Concomitant]

REACTIONS (3)
  - EYE SWELLING [None]
  - PAIN IN EXTREMITY [None]
  - VISION BLURRED [None]
